FAERS Safety Report 4558013-5 (Version None)
Quarter: 2005Q1

REPORT INFORMATION
  Report Type: 
  Country: None (occurrence: None)
  Receive Date: 20050121
  Receipt Date: 20040512
  Transmission Date: 20050727
  Serious: No
  Sender: FDA-Public Use
  Company Number: US-BRISTOL-MYERS SQUIBB COMPANY-12585980

PATIENT
  Sex: Female
  Weight: 57 kg

DRUGS (2)
  1. SERZONE [Suspect]
     Indication: DEPRESSION
     Route: 048
     Dates: start: 20000526, end: 20010901
  2. WELLBUTRIN [Concomitant]
     Dosage: ^FOR A FEW MONTHS^
     Dates: start: 20010101

REACTIONS (6)
  - HEPATITIS [None]
  - JOINT SWELLING [None]
  - LIVER FUNCTION TEST ABNORMAL [None]
  - OROPHARYNGEAL SWELLING [None]
  - SPONDYLOARTHROPATHY [None]
  - WHITE BLOOD CELL COUNT INCREASED [None]
